FAERS Safety Report 6550777-4 (Version None)
Quarter: 2010Q1

REPORT INFORMATION
  Report Type: 
  Country: None (occurrence: None)
  Receive Date: 20100125
  Receipt Date: 20100120
  Transmission Date: 20100710
  Serious: Yes (Hospitalization)
  Sender: FDA-Public Use
  Company Number: PHHY2010DE03097

PATIENT
  Sex: Female
  Weight: 70 kg

DRUGS (4)
  1. CGS 20267 T30748+ [Suspect]
     Indication: BREAST CANCER
     Dosage: 2.5 MG, QD
     Route: 048
     Dates: start: 20090707
  2. RAMIPRIL [Concomitant]
     Dosage: UNK
     Dates: start: 20070101
  3. ASPIRIN [Concomitant]
     Dosage: UNK
     Dates: start: 20080101
  4. SIMVASTATIN [Concomitant]
     Dosage: UNK
     Dates: start: 20050101

REACTIONS (3)
  - AXILLARY MASS [None]
  - LYMPHADENECTOMY [None]
  - SOFT TISSUE DISORDER [None]
